FAERS Safety Report 14679977 (Version 12)
Quarter: 2018Q2

REPORT INFORMATION
  Report Type: Spontaneous
  Country: PL (occurrence: PL)
  Receive Date: 20180326
  Receipt Date: 20180613
  Transmission Date: 20180711
  Serious: Yes (Hospitalization)
  Sender: FDA-Public Use
  Company Number: PHHY2018PL043094

PATIENT
  Age: 55 Year
  Sex: Female

DRUGS (2)
  1. DICLOFENAC [Suspect]
     Active Substance: DICLOFENAC
     Indication: PRODUCT USED FOR UNKNOWN INDICATION
     Dosage: 750 MG
     Route: 065
  2. TIZANIDINE. [Suspect]
     Active Substance: TIZANIDINE
     Indication: PRODUCT USED FOR UNKNOWN INDICATION
     Dosage: 30 TABLETS OF 4 MG EACH ; IN TOTAL
     Route: 065

REACTIONS (9)
  - Acute myocardial infarction [Recovered/Resolved]
  - Troponin increased [Unknown]
  - Low density lipoprotein increased [Unknown]
  - Somnolence [Unknown]
  - Toxicity to various agents [Unknown]
  - Overdose [Unknown]
  - Electrocardiogram ST segment abnormal [Unknown]
  - Suicide attempt [Unknown]
  - Blood cholesterol increased [Unknown]
